FAERS Safety Report 4644180-1 (Version None)
Quarter: 2005Q2

REPORT INFORMATION
  Report Type: 
  Country: None (occurrence: None)
  Receive Date: 20050425
  Receipt Date: 20050415
  Transmission Date: 20051028
  Serious: Yes (Life-Threatening, Hospitalization)
  Sender: FDA-Public Use
  Company Number: GB-ABBOTT-05P-167-0298169-00

PATIENT
  Sex: Male

DRUGS (3)
  1. KALETRA [Suspect]
     Indication: DRUG USE FOR UNKNOWN INDICATION
     Dates: start: 20021204
  2. TENOFOVIR [Concomitant]
     Indication: DRUG USE FOR UNKNOWN INDICATION
     Dates: start: 20020409
  3. LAMIVUDINE [Concomitant]
     Indication: DRUG USE FOR UNKNOWN INDICATION
     Dates: start: 19961029

REACTIONS (4)
  - DYSPHAGIA [None]
  - GASTRIC HYPERPLASIA [None]
  - HELICOBACTER PYLORI IDENTIFICATION TEST POSITIVE [None]
  - OESOPHAGEAL ADENOCARCINOMA [None]
